FAERS Safety Report 23012468 (Version 3)
Quarter: 2024Q1

REPORT INFORMATION
  Report Type: Spontaneous
  Country: US (occurrence: US)
  Receive Date: 20230930
  Receipt Date: 20240313
  Transmission Date: 20240409
  Serious: No
  Sender: FDA-Public Use
  Company Number: US-SA-SAC20230927001300

PATIENT
  Age: 47 Year
  Sex: Female

DRUGS (1)
  1. DUPIXENT [Suspect]
     Active Substance: DUPILUMAB
     Dosage: 300 MG, QOW
     Route: 058

REACTIONS (17)
  - Peripheral swelling [Unknown]
  - Dry skin [Unknown]
  - Headache [Unknown]
  - Sleep disorder [Unknown]
  - Skin fissures [Unknown]
  - Rash erythematous [Unknown]
  - Injection site hypersensitivity [Unknown]
  - Pain in extremity [Unknown]
  - Pruritus [Unknown]
  - Erythema [Unknown]
  - Skin burning sensation [Unknown]
  - Skin exfoliation [Unknown]
  - Injection site rash [Unknown]
  - Injection site pain [Unknown]
  - Dry eye [Unknown]
  - Rash [Unknown]
  - Surgery [Unknown]

NARRATIVE: CASE EVENT DATE: 20221201
